FAERS Safety Report 9508373 (Version 2)
Quarter: 2013Q3

REPORT INFORMATION
  Report Type: Spontaneous
  Country: NO (occurrence: NO)
  Receive Date: 20130909
  Receipt Date: 20130909
  Transmission Date: 20140515
  Serious: Yes (Disabling, Other)
  Sender: FDA-Public Use
  Company Number: NO-BAYER-2013-103023

PATIENT
  Age: 74 Year
  Sex: Female

DRUGS (17)
  1. CIPROXIN [Suspect]
     Indication: PNEUMONIA
     Dosage: 500 MG, BID
     Dates: start: 20080725, end: 20080731
  2. FLAGYL [Suspect]
     Indication: PNEUMONIA
     Dosage: 400 MG, TID
     Route: 048
     Dates: start: 20080725, end: 20080731
  3. TOBRAMYCIN [Suspect]
     Indication: PNEUMONIA
     Dosage: UNK
     Route: 048
     Dates: start: 20080718, end: 20080725
  4. LANSOPRAZOLE [Concomitant]
     Dosage: UNK
     Dates: start: 2006, end: 201202
  5. DIGITOXIN [Concomitant]
     Dosage: .5 DF, UNK
     Route: 048
     Dates: start: 2005, end: 201106
  6. ZINACEF [Concomitant]
     Dosage: UNK
     Dates: start: 20080717, end: 20080725
  7. BETA-LACTAM ANTIBACTERIALS, PENICILLINS [Concomitant]
     Dosage: UNK
     Dates: start: 20080717, end: 20080725
  8. ALBYL-E [Concomitant]
     Dosage: 75 MG, QD
  9. MAREVAN [Concomitant]
     Dosage: UNK
     Dates: start: 2005
  10. METFORMIN [Concomitant]
     Dosage: 500 MG, QD
  11. CIPRALEX [Concomitant]
     Dosage: 10 MG, QD
  12. VERAPAMIL [Concomitant]
     Dosage: 2 DF, UNK
     Route: 048
     Dates: start: 2006, end: 201106
  13. REMERON [Concomitant]
  14. SAROTEX [Concomitant]
  15. ATACAND PLUS [Concomitant]
     Dosage: 1 DF, QD
     Route: 048
     Dates: start: 2004, end: 2011
  16. PENICILLIN [Concomitant]
     Dosage: UNK
     Dates: start: 20080717, end: 20080725
  17. NEXIUM [Concomitant]

REACTIONS (15)
  - Quality of life decreased [Unknown]
  - Sensory loss [Not Recovered/Not Resolved]
  - Activities of daily living impaired [Unknown]
  - Carpal tunnel syndrome [Not Recovered/Not Resolved]
  - Balance disorder [Unknown]
  - Paraesthesia [Not Recovered/Not Resolved]
  - Paraesthesia [Not Recovered/Not Resolved]
  - Insomnia [Unknown]
  - Polyneuropathy [Not Recovered/Not Resolved]
  - Burning sensation [Not Recovered/Not Resolved]
  - Depression [Unknown]
  - Paraesthesia [Unknown]
  - Pain in extremity [Not Recovered/Not Resolved]
  - Dizziness [Unknown]
  - Thermoanaesthesia [Not Recovered/Not Resolved]
